FAERS Safety Report 6475923-2 (Version None)
Quarter: 2009Q4

REPORT INFORMATION
  Report Type: 
  Country: None (occurrence: None)
  Receive Date: 20091204
  Receipt Date: 20091125
  Transmission Date: 20100525
  Serious: Yes (Other)
  Sender: FDA-Public Use
  Company Number: PHHY2009BR52231

PATIENT
  Sex: Female

DRUGS (5)
  1. DIOVAN HCT [Suspect]
     Dosage: 1 TABLET/DAY
     Route: 048
     Dates: start: 20090701
  2. REMILEV [Concomitant]
     Dosage: UNK
     Dates: start: 20090701
  3. ACTOS [Concomitant]
     Indication: DIABETES MELLITUS
     Dosage: 1 TABLET IN FASTING
     Route: 048
  4. GLIMEPIRIDE [Concomitant]
     Indication: DIABETES MELLITUS
     Dosage: 2 TABLETS/DAY
     Route: 048
  5. CITALOPRAM HYDROBROMIDE [Concomitant]
     Dosage: 1 TABLET/DAY
     Route: 048
     Dates: start: 20090701

REACTIONS (3)
  - CATARACT [None]
  - CATARACT OPERATION [None]
  - CATARACT OPERATION COMPLICATION [None]
